FAERS Safety Report 6681755-2 (Version None)
Quarter: 2010Q2

REPORT INFORMATION
  Report Type: 
  Country: None (occurrence: None)
  Receive Date: 20100414
  Receipt Date: 20100412
  Transmission Date: 20101027
  Serious: Yes (Death)
  Sender: FDA-Public Use
  Company Number: JP-SANOFI-AVENTIS-2010SA021048

PATIENT
  Age: 85 Year
  Sex: Male

DRUGS (1)
  1. TAXOTERE [Suspect]
     Indication: PROSTATE CANCER RECURRENT
     Dosage: DOSE:80 MILLIGRAM(S)/MILLILITRE
     Route: 051
     Dates: start: 20100324

REACTIONS (1)
  - CARDIAC FAILURE [None]
